FAERS Safety Report 8208869-X (Version None)
Quarter: 2012Q1

REPORT INFORMATION
  Report Type: 
  Country: None (occurrence: None)
  Receive Date: 20120314
  Receipt Date: 20120302
  Transmission Date: 20120608
  Serious: Yes (Other)
  Sender: FDA-Public Use
  Company Number: US-ROCHE-1044819

PATIENT
  Sex: Female

DRUGS (1)
  1. ZELBORAF [Suspect]
     Indication: PRODUCT USED FOR UNKNOWN INDICATION
     Route: 048
     Dates: start: 20120111

REACTIONS (10)
  - ARTHRALGIA [None]
  - MASS [None]
  - HEADACHE [None]
  - VOMITING [None]
  - NAUSEA [None]
  - PHOTOSENSITIVITY REACTION [None]
  - FATIGUE [None]
  - MYALGIA [None]
  - PAPULE [None]
  - SUNBURN [None]
